FAERS Safety Report 4388005-0 (Version None)
Quarter: 2004Q2

REPORT INFORMATION
  Report Type: 
  Country: None (occurrence: None)
  Receive Date: 20040607
  Receipt Date: 20031112
  Transmission Date: 20050107
  Serious: Yes (Disabling)
  Sender: FDA-Public Use
  Company Number: 351751

PATIENT
  Age: 37 Year
  Sex: Male
  Weight: 113.4 kg

DRUGS (1)
  1. ACCUTANE [Suspect]
     Indication: ACNE
     Dosage: 20 MG DAILY ORAL
     Route: 048
     Dates: start: 20010314

REACTIONS (3)
  - BACK PAIN [None]
  - EXOSTOSIS [None]
  - NECK PAIN [None]
